FAERS Safety Report 18809064 (Version 3)
Quarter: 2021Q1

REPORT INFORMATION
  Report Type: Spontaneous
  Country: US (occurrence: US)
  Receive Date: 20210129
  Receipt Date: 20210322
  Transmission Date: 20210419
  Serious: No
  Sender: FDA-Public Use
  Company Number: US-BIOVITRUM-2021US0756

PATIENT
  Age: 1 Year
  Sex: Male
  Weight: 10 kg

DRUGS (13)
  1. FLOVENT DISKUS [Concomitant]
     Active Substance: FLUTICASONE PROPIONATE
     Dosage: 100 MCG BLST W/DEV
  2. AMOXICILLIN. [Concomitant]
     Active Substance: AMOXICILLIN
  3. EPINEPHRINE HCL [Concomitant]
     Active Substance: EPINEPHRINE
  4. GABAPENTIN. [Concomitant]
     Active Substance: GABAPENTIN
  5. SYNAGIS [Suspect]
     Active Substance: PALIVIZUMAB
     Indication: CHRONIC RESPIRATORY FAILURE
  6. ATROVENT HFA [Concomitant]
     Active Substance: IPRATROPIUM BROMIDE
     Dosage: 17MCG HFA AER AD
  7. LANSOPRAZOLE. [Concomitant]
     Active Substance: LANSOPRAZOLE
  8. SODIUM CHLORIDE. [Concomitant]
     Active Substance: SODIUM CHLORIDE
  9. SYNAGIS [Suspect]
     Active Substance: PALIVIZUMAB
     Indication: UPPER RESPIRATORY TRACT INFECTION
  10. SYNAGIS [Suspect]
     Active Substance: PALIVIZUMAB
     Indication: PULMONARY ARTERY STENOSIS CONGENITAL
  11. XOPENEX [Concomitant]
     Active Substance: LEVALBUTEROL HYDROCHLORIDE
     Dosage: 0.31MG/3ML VIAL?NEB
  12. SYNAGIS [Suspect]
     Active Substance: PALIVIZUMAB
     Indication: LUNG DISORDER
     Route: 030
  13. LASIX [Concomitant]
     Active Substance: FUROSEMIDE

REACTIONS (2)
  - Weight decreased [Unknown]
  - Genital injury [Unknown]

NARRATIVE: CASE EVENT DATE: 20210118
